FAERS Safety Report 23552276 (Version 1)
Quarter: 2024Q1

REPORT INFORMATION
  Report Type: Spontaneous
  Country: CA (occurrence: CA)
  Receive Date: 20240222
  Receipt Date: 20240222
  Transmission Date: 20240409
  Serious: Yes (Other)
  Sender: FDA-Public Use
  Company Number: CA-CELLTRION INC.-2023CA018559

PATIENT

DRUGS (3)
  1. INFLECTRA [Suspect]
     Active Substance: INFLIXIMAB-DYYB
     Indication: Uveitis
     Dosage: 150 MG, EVERY 5 WEEKS FOR 12 MONTHS
     Route: 042
     Dates: start: 20231101
  2. INFLECTRA [Suspect]
     Active Substance: INFLIXIMAB-DYYB
     Dosage: 150 MG, EVERY 5 WEEKS FOR 12 MONTHS
     Route: 042
     Dates: start: 20240109
  3. CETIRIZINE [Concomitant]
     Active Substance: CETIRIZINE HYDROCHLORIDE
     Indication: Premedication
     Dosage: 5 MG, 30 MINUTES PRIOR TO INFUSION
     Route: 048

REACTIONS (3)
  - Joint swelling [Unknown]
  - Drug level below therapeutic [Not Recovered/Not Resolved]
  - Off label use [Unknown]

NARRATIVE: CASE EVENT DATE: 20240101
